FAERS Safety Report 9470654 (Version 3)
Quarter: 2015Q2

REPORT INFORMATION
  Report Type: Spontaneous
  Country: US (occurrence: US)
  Receive Date: 20130822
  Receipt Date: 20150604
  Transmission Date: 20150821
  Serious: Yes (Life-Threatening, Congenital Anomaly, Other)
  Sender: FDA-Public Use
  Company Number: US-ELI_LILLY_AND_COMPANY-US201308005429

PATIENT
  Age: 0 Day

DRUGS (4)
  1. PROZAC [Suspect]
     Active Substance: FLUOXETINE HYDROCHLORIDE
     Indication: BIPOLAR DISORDER
  2. PROZAC [Suspect]
     Active Substance: FLUOXETINE HYDROCHLORIDE
     Indication: ANXIETY
  3. PROZAC [Suspect]
     Active Substance: FLUOXETINE HYDROCHLORIDE
     Indication: BORDERLINE PERSONALITY DISORDER
     Dosage: 20 MG, QD
     Route: 064
  4. TRAZODONE [Concomitant]
     Active Substance: TRAZODONE HYDROCHLORIDE
     Dosage: 200 MG, EACH EVENING
     Route: 064

REACTIONS (14)
  - Foetal hypokinesia [Unknown]
  - Neonatal respiratory distress syndrome [Unknown]
  - Apnoea [Recovered/Resolved]
  - Patent ductus arteriosus [Unknown]
  - Anaemia [Unknown]
  - Pulmonary valve stenosis [Unknown]
  - Metabolic acidosis [Unknown]
  - Premature baby [Unknown]
  - Bradycardia [Recovered/Resolved]
  - Atrial septal defect [Unknown]
  - Hyperbilirubinaemia [Recovered/Resolved]
  - Dysphagia [Recovered/Resolved]
  - Neonatal hypoxia [Recovered/Resolved]
  - Foetal exposure during pregnancy [Recovered/Resolved]

NARRATIVE: CASE EVENT DATE: 20060428
